FAERS Safety Report 5451430-0 (Version None)
Quarter: 2007Q3

REPORT INFORMATION
  Report Type: 
  Country: None (occurrence: None)
  Receive Date: 20070913
  Receipt Date: 20070903
  Transmission Date: 20080115
  Serious: Yes (Hospitalization)
  Sender: FDA-Public Use
  Company Number: B0486770A

PATIENT
  Age: 100 Year
  Sex: Female

DRUGS (8)
  1. AUGMENTIN '125' [Suspect]
     Indication: SYSTEMIC ANTIBACTERIAL THERAPY
     Route: 048
     Dates: start: 20070702, end: 20070718
  2. SINTROM [Suspect]
     Dosage: 1MG PER DAY
     Route: 048
     Dates: start: 20070702, end: 20070708
  3. SERESTA [Concomitant]
     Route: 065
  4. FUMAFER [Concomitant]
     Route: 065
  5. LASIX [Concomitant]
     Route: 065
  6. INIPOMP [Concomitant]
     Route: 065
  7. CARDENSIEL [Concomitant]
     Route: 065
  8. DAFALGAN [Concomitant]
     Route: 065

REACTIONS (2)
  - DRUG INTERACTION [None]
  - INTERNATIONAL NORMALISED RATIO INCREASED [None]
